FAERS Safety Report 16616396 (Version 1)
Quarter: 2019Q3

REPORT INFORMATION
  Report Type: Spontaneous
  Country: US (occurrence: US)
  Receive Date: 20190723
  Receipt Date: 20190723
  Transmission Date: 20191004
  Serious: Yes (Other)
  Sender: FDA-Public Use
  Company Number: None

PATIENT
  Age: 69 Year
  Sex: Female
  Weight: 66.6 kg

DRUGS (13)
  1. VITAMIN E [Concomitant]
     Active Substance: .ALPHA.-TOCOPHEROL
  2. MAGNESIUM TAURATE [Concomitant]
  3. TIME RELEASE C [Concomitant]
  4. DHA [Concomitant]
     Active Substance: DIETARY SUPPLEMENT
  5. VITAMIN D3 [Concomitant]
     Active Substance: CHOLECALCIFEROL
  6. NICOTINAMIDE [Concomitant]
     Active Substance: NIACINAMIDE
  7. BILOBA [Concomitant]
  8. VINPOCETINE [Concomitant]
     Active Substance: VINPOCETINE
  9. CHOLINE [Concomitant]
     Active Substance: CHOLINE
  10. ZIOPTAN [Suspect]
     Active Substance: TAFLUPROST
     Indication: NORMAL TENSION GLAUCOMA
     Dosage: ?          QUANTITY:30 0.3 ML EACH;?
     Route: 047
     Dates: start: 20190111, end: 20190704
  11. OMEGA 3 [Concomitant]
     Active Substance: OMEGA-3 FATTY ACIDS
  12. ARMOUR THYROID [Concomitant]
     Active Substance: THYROID, PORCINE
  13. BIOTIN [Concomitant]
     Active Substance: BIOTIN

REACTIONS (13)
  - Abdominal pain upper [None]
  - Heart rate irregular [None]
  - Heart rate increased [None]
  - Myalgia [None]
  - Hypertension [None]
  - Autoimmune disorder [None]
  - Oropharyngeal pain [None]
  - Upper-airway cough syndrome [None]
  - Arthralgia [None]
  - Radiculopathy [None]
  - Vomiting [None]
  - Pain [None]
  - Urticaria [None]

NARRATIVE: CASE EVENT DATE: 20190213
